FAERS Safety Report 6820144-4 (Version None)
Quarter: 2010Q3

REPORT INFORMATION
  Report Type: 
  Country: None (occurrence: None)
  Receive Date: 20100707
  Receipt Date: 20100701
  Transmission Date: 20110219
  Serious: Yes (Life-Threatening, Hospitalization, Other)
  Sender: FDA-Public Use
  Company Number: US-MERCK-1006USA03639

PATIENT
  Age: 81 Year
  Sex: Male

DRUGS (5)
  1. SINGULAIR [Suspect]
     Indication: ASTHMA
     Route: 048
  2. AMIODARONE [Concomitant]
     Route: 065
  3. COUMADIN [Concomitant]
     Route: 065
  4. FLAGYL [Concomitant]
     Route: 065
  5. LISINOPRIL [Concomitant]
     Route: 048

REACTIONS (4)
  - ADVERSE EVENT [None]
  - ALLERGIC GRANULOMATOUS ANGIITIS [None]
  - CARDIAC OUTPUT DECREASED [None]
  - PLATELET COUNT ABNORMAL [None]
